FAERS Safety Report 12569522 (Version 1)
Quarter: 2016Q3

REPORT INFORMATION
  Report Type: Spontaneous
  Country: US (occurrence: US)
  Receive Date: 20160719
  Receipt Date: 20160719
  Transmission Date: 20161109
  Serious: No
  Sender: FDA-Public Use
  Company Number: US-PFIZER INC-2016348366

PATIENT
  Age: 53 Year
  Sex: Female

DRUGS (2)
  1. PREMARIN [Suspect]
     Active Substance: ESTROGENS, CONJUGATED
     Indication: RECTOCELE
     Dosage: UNK
  2. PREMARIN [Suspect]
     Active Substance: ESTROGENS, CONJUGATED
     Indication: CYSTOCELE

REACTIONS (4)
  - Menstrual discomfort [Unknown]
  - Menstruation irregular [Unknown]
  - Product use issue [Unknown]
  - Medication error [Unknown]

NARRATIVE: CASE EVENT DATE: 2016
